FAERS Safety Report 6444306-3 (Version None)
Quarter: 2009Q4

REPORT INFORMATION
  Report Type: 
  Country: None (occurrence: None)
  Receive Date: 20091118
  Receipt Date: 20091109
  Transmission Date: 20100525
  Serious: Yes (Disabling)
  Sender: FDA-Public Use
  Company Number: PHHY2009IT49523

PATIENT
  Age: 66 Year
  Sex: Male

DRUGS (3)
  1. TEGRETOL [Suspect]
     Indication: PSYCHOTIC DISORDER
     Dosage: 2 POSOLOGIC UNITS
     Route: 048
     Dates: start: 20020108, end: 20050108
  2. DELORAZEPAM [Suspect]
     Indication: PSYCHOTIC DISORDER
     Dosage: 10 DROPS
     Route: 048
     Dates: start: 20050108
  3. ZYPREXA [Suspect]
     Indication: PSYCHOTIC DISORDER
     Dosage: 10 MG DAILY
     Route: 048
     Dates: start: 20021004, end: 20050108

REACTIONS (2)
  - PERIODONTITIS [None]
  - TOOTH LOSS [None]
